FAERS Safety Report 8997004 (Version 2)
Quarter: 2013Q1

REPORT INFORMATION
  Report Type: Spontaneous
  Country: IT (occurrence: IT)
  Receive Date: 20130104
  Receipt Date: 20130115
  Transmission Date: 20140127
  Serious: Yes (Hospitalization, Other)
  Sender: FDA-Public Use
  Company Number: IT-PFIZER INC-2013001468

PATIENT
  Age: 82 Year
  Sex: Female

DRUGS (1)
  1. GEMCITABINE HYDROCHLORIDE [Suspect]
     Indication: PANCREATIC CARCINOMA METASTATIC
     Dosage: 1000 MG/MQ EVERY 7 DAYS FOR THREE TIMES (TOTAL DOSE OF 10.8 GR)

REACTIONS (6)
  - Skin necrosis [Recovering/Resolving]
  - Skin ulcer [None]
  - Anaemia [None]
  - Metastasis [None]
  - Malignant neoplasm progression [None]
  - Inflammatory marker increased [None]
